FAERS Safety Report 8155521-5 (Version None)
Quarter: 2012Q1

REPORT INFORMATION
  Report Type: 
  Country: None (occurrence: None)
  Receive Date: 20120215
  Receipt Date: 20120207
  Transmission Date: 20120608
  Serious: Yes (Hospitalization)
  Sender: FDA-Public Use
  Company Number: 2012SP006935

PATIENT
  Sex: Female
  Weight: 59 kg

DRUGS (1)
  1. IMPLANON [Suspect]
     Indication: CONTRACEPTION
     Dosage: ;UNK;UNK

REACTIONS (11)
  - FATIGUE [None]
  - VULVOVAGINAL CANDIDIASIS [None]
  - BONE DENSITY DECREASED [None]
  - VULVOVAGINAL DRYNESS [None]
  - VULVOVAGINAL PRURITUS [None]
  - BACK PAIN [None]
  - VULVOVAGINAL BURNING SENSATION [None]
  - ENDOMETRIOSIS [None]
  - WEIGHT INCREASED [None]
  - DEPRESSION [None]
  - OSTEOARTHRITIS [None]
